APPROVED DRUG PRODUCT: VIOCIN SULFATE
Active Ingredient: VIOMYCIN SULFATE
Strength: EQ 5GM BASE/VIAL
Dosage Form/Route: INJECTABLE;INJECTION
Application: A061086 | Product #002
Applicant: PFIZER LABORATORIES DIV PFIZER INC
Approved: Approved Prior to Jan 1, 1982 | RLD: No | RS: No | Type: DISCN